FAERS Safety Report 6325970-6 (Version None)
Quarter: 2009Q3

REPORT INFORMATION
  Report Type: 
  Country: None (occurrence: None)
  Receive Date: 20090824
  Receipt Date: 20090812
  Transmission Date: 20100115
  Serious: Yes (Hospitalization)
  Sender: FDA-Public Use
  Company Number: US-JNJFOC-20090803910

PATIENT
  Sex: Male
  Weight: 28 kg

DRUGS (3)
  1. INFLIXIMAB [Suspect]
     Indication: CROHN'S DISEASE
     Dosage: DISCONTINUED AT FOLLOW UP VISIT 2
     Route: 042
  2. HUMIRA [Concomitant]
  3. HUMIRA [Concomitant]

REACTIONS (1)
  - CROHN'S DISEASE [None]
